FAERS Safety Report 5002776-1 (Version None)
Quarter: 2006Q2

REPORT INFORMATION
  Report Type: 
  Country: None (occurrence: None)
  Receive Date: 20060516
  Receipt Date: 20060505
  Transmission Date: 20061013
  Serious: Yes (Life-Threatening)
  Sender: FDA-Public Use
  Company Number: FR-BRISTOL-MYERS SQUIBB COMPANY-13369319

PATIENT
  Age: 73 Year
  Sex: Female
  Weight: 60 kg

DRUGS (2)
  1. CARBOPLATIN [Suspect]
     Indication: LARYNGEAL CANCER
     Route: 042
     Dates: start: 20060310, end: 20060312
  2. FLUOROURACIL [Suspect]
     Indication: LARYNGEAL CANCER
     Route: 042
     Dates: start: 20060310, end: 20060312

REACTIONS (3)
  - CHEST PAIN [None]
  - TORSADE DE POINTES [None]
  - VENTRICULAR FIBRILLATION [None]
